FAERS Safety Report 8303569-X (Version None)
Quarter: 2012Q2

REPORT INFORMATION
  Report Type: 
  Country: None (occurrence: None)
  Receive Date: 20120423
  Receipt Date: 20120308
  Transmission Date: 20120825
  Serious: Yes (Disabling)
  Sender: FDA-Public Use
  Company Number: DE-BAYER-2012-001492

PATIENT
  Age: 71 Year
  Sex: Male
  Weight: 70 kg

DRUGS (5)
  1. GADAVIST [Suspect]
     Indication: LIP AND/OR ORAL CAVITY CANCER
     Dosage: UNK
     Route: 042
     Dates: start: 20090320
  2. BLOOD PRESSURE MEDICATION (NOS) [Concomitant]
  3. GADAVIST [Suspect]
     Dosage: UNK
     Route: 042
     Dates: start: 20101229
  4. DOTAREM [Suspect]
     Indication: LIP AND/OR ORAL CAVITY CANCER
     Dosage: UNK
     Route: 042
     Dates: start: 20090908
  5. MULTIHANCE [Suspect]
     Indication: LIP AND/OR ORAL CAVITY CANCER
     Dosage: UNK
     Route: 042
     Dates: start: 20091214

REACTIONS (1)
  - SKIN HYPERPIGMENTATION [None]
